FAERS Safety Report 6862808-2 (Version None)
Quarter: 2010Q3

REPORT INFORMATION
  Report Type: 
  Country: None (occurrence: None)
  Receive Date: 20100721
  Receipt Date: 20100630
  Transmission Date: 20110219
  Serious: Yes (Hospitalization)
  Sender: FDA-Public Use
  Company Number: A0743353A

PATIENT
  Age: 49 Year
  Sex: Male
  Weight: 87.3 kg

DRUGS (9)
  1. AVANDIA [Suspect]
     Dosage: 4MG PER DAY
     Route: 048
     Dates: start: 19990101, end: 20080601
  2. METFORMIN [Concomitant]
     Dates: start: 20070601
  3. AMARYL [Concomitant]
     Dates: start: 20001117, end: 20001125
  4. NEXIUM [Concomitant]
  5. LEVAQUIN [Concomitant]
  6. CEFUROXIME AXETIL [Concomitant]
  7. CARDURA [Concomitant]
  8. LIPITOR [Concomitant]
  9. ADVAIR DISKUS 100/50 [Concomitant]

REACTIONS (2)
  - CORONARY ARTERY DISEASE [None]
  - MYOCARDIAL INFARCTION [None]
